FAERS Safety Report 4490554-1 (Version None)
Quarter: 2004Q4

REPORT INFORMATION
  Report Type: 
  Country: None (occurrence: None)
  Receive Date: 20041028
  Receipt Date: 20041019
  Transmission Date: 20050328
  Serious: Yes (Other)
  Sender: FDA-Public Use
  Company Number: 2004080951

PATIENT
  Age: 21 Year
  Sex: Female

DRUGS (6)
  1. DOXYCYCLINE [Suspect]
     Indication: PELVIC INFLAMMATORY DISEASE
     Dosage: 200 MG (100 MG, 2 IN 1 D), ORAL
     Route: 048
     Dates: start: 20040810, end: 20040819
  2. MINOCYCLINE HCL [Concomitant]
  3. VENLAFAXINE (VENLAFAXINE) [Concomitant]
  4. OLANZAPINE [Concomitant]
  5. PROPRANOLOL [Concomitant]
  6. ZOPICLONE (ZOPICLONE) [Concomitant]

REACTIONS (1)
  - BENIGN INTRACRANIAL HYPERTENSION [None]
